FAERS Safety Report 16951919 (Version 1)
Quarter: 2019Q4

REPORT INFORMATION
  Report Type: Spontaneous
  Country: US (occurrence: US)
  Receive Date: 20190822
  Receipt Date: 20190822
  Transmission Date: 20200122
  Serious: No
  Sender: FDA-Public Use
  Company Number: None

PATIENT
  Age: 63 Year
  Sex: Male

DRUGS (1)
  1. COMPLERA [Suspect]
     Active Substance: EMTRICITABINE\RILPIVIRINE HYDROCHLORIDE\TENOFOVIR DISOPROXIL FUMARATE
     Route: 048
     Dates: start: 201706

REACTIONS (5)
  - Depression [None]
  - Insurance issue [None]
  - Viral load increased [None]
  - Abnormal dreams [None]
  - Product dose omission [None]

NARRATIVE: CASE EVENT DATE: 20190822
